FAERS Safety Report 15455586 (Version 1)
Quarter: 2018Q4

REPORT INFORMATION
  Report Type: Spontaneous
  Country: TH (occurrence: TH)
  Receive Date: 20181002
  Receipt Date: 20181002
  Transmission Date: 20190204
  Serious: Yes (Death, Other)
  Sender: FDA-Public Use
  Company Number: TH-GLAXOSMITHKLINE-TH2018177921

PATIENT
  Age: 28 Year
  Sex: Male

DRUGS (2)
  1. ITRACONAZOLE. [Suspect]
     Active Substance: ITRACONAZOLE
     Indication: PYTHIUM INSIDIOSUM INFECTION
     Dosage: UNK
     Route: 065
  2. TERBINAFINE. [Suspect]
     Active Substance: TERBINAFINE
     Indication: PYTHIUM INSIDIOSUM INFECTION
     Dosage: UNK
     Route: 065

REACTIONS (1)
  - Pythium insidiosum infection [Fatal]
